FAERS Safety Report 21147544 (Version 1)
Quarter: 2022Q3

REPORT INFORMATION
  Report Type: Spontaneous
  Country: US (occurrence: None)
  Receive Date: 20220728
  Receipt Date: 20220728
  Transmission Date: 20221026
  Serious: Yes (Life-Threatening, Hospitalization)
  Sender: FDA-Public Use
  Company Number: None

PATIENT
  Age: 71 Year
  Sex: Female

DRUGS (1)
  1. NAFCILLIN [Suspect]
     Active Substance: NAFCILLIN SODIUM

REACTIONS (5)
  - Atrial fibrillation [None]
  - Therapy cessation [None]
  - Arteriogram coronary normal [None]
  - Blood magnesium decreased [None]
  - White blood cell count increased [None]

NARRATIVE: CASE EVENT DATE: 20220308
